FAERS Safety Report 23676478 (Version 2)
Quarter: 2024Q1

REPORT INFORMATION
  Report Type: Report from Study
  Country: CO (occurrence: CO)
  Receive Date: 20240327
  Receipt Date: 20240327
  Transmission Date: 20240410
  Serious: Yes (Other)
  Sender: FDA-Public Use
  Company Number: CO-JNJFOC-20240366608

PATIENT
  Age: 72 Year
  Sex: Male
  Weight: 77 kg

DRUGS (1)
  1. IMBRUVICA [Suspect]
     Active Substance: IBRUTINIB
     Indication: Mantle cell lymphoma
     Route: 048
     Dates: start: 20210417

REACTIONS (1)
  - Catheter removal [Recovered/Resolved]

NARRATIVE: CASE EVENT DATE: 20240313
